FAERS Safety Report 24071395 (Version 1)
Quarter: 2024Q3

REPORT INFORMATION
  Report Type: Report from Study
  Country: US (occurrence: US)
  Receive Date: 20240710
  Receipt Date: 20240710
  Transmission Date: 20241016
  Serious: No
  Sender: ROCHE
  Company Number: US-ROCHE-2812761

PATIENT
  Age: 3 Year
  Sex: Male
  Weight: 14.0 kg

DRUGS (3)
  1. EVRYSDI [Suspect]
     Active Substance: RISDIPLAM
     Indication: Spinal muscular atrophy
     Dosage: 4.6ML
     Route: 048
     Dates: start: 20210318
  2. EVRYSDI [Suspect]
     Active Substance: RISDIPLAM
     Dosage: (0.75 MG/ML)
     Route: 048
  3. SYNAGIS [Concomitant]
     Active Substance: PALIVIZUMAB

REACTIONS (1)
  - Weight increased [Unknown]
